FAERS Safety Report 8017923-7 (Version None)
Quarter: 2012Q1

REPORT INFORMATION
  Report Type: 
  Country: None (occurrence: None)
  Receive Date: 20120103
  Receipt Date: 20111222
  Transmission Date: 20120608
  Serious: Yes (Hospitalization)
  Sender: FDA-Public Use
  Company Number: US-JNJFOC-20111210308

PATIENT
  Sex: Female
  Weight: 99.79 kg

DRUGS (10)
  1. REMICADE [Suspect]
     Indication: OSTEOARTHRITIS
     Route: 042
     Dates: start: 20110201
  2. METHOTREXATE [Concomitant]
     Indication: RHEUMATOID ARTHRITIS
     Route: 048
  3. NISTATIN [Concomitant]
     Indication: BLOOD CHOLESTEROL
     Route: 048
  4. NEXIUM [Concomitant]
     Indication: GASTROOESOPHAGEAL REFLUX DISEASE
     Route: 048
  5. REMICADE [Suspect]
     Route: 042
     Dates: start: 20110601, end: 20111001
  6. TRICOR [Concomitant]
     Indication: BLOOD CHOLESTEROL
     Route: 048
  7. ENALAPRIL MALEATE [Concomitant]
     Indication: BLOOD PRESSURE
     Route: 048
  8. REMICADE [Suspect]
     Route: 042
     Dates: start: 20110601, end: 20111001
  9. REMICADE [Suspect]
     Indication: RHEUMATOID ARTHRITIS
     Route: 042
     Dates: start: 20110201
  10. CELEBREX [Concomitant]
     Indication: RHEUMATOID ARTHRITIS
     Route: 048

REACTIONS (4)
  - PAIN [None]
  - BONE DISORDER [None]
  - ABNORMAL LOSS OF WEIGHT [None]
  - DECREASED APPETITE [None]
